FAERS Safety Report 7405504-5 (Version None)
Quarter: 2011Q2

REPORT INFORMATION
  Report Type: 
  Country: None (occurrence: None)
  Receive Date: 20110411
  Receipt Date: 20110404
  Transmission Date: 20111010
  Serious: Yes (Life-Threatening, Hospitalization)
  Sender: FDA-Public Use
  Company Number: JP-BAYER-2011-026715

PATIENT
  Age: 63 Year
  Sex: Male

DRUGS (3)
  1. NEXAVAR [Suspect]
     Indication: HEPATIC NEOPLASM MALIGNANT
     Dosage: 400 MG, QD
     Route: 048
     Dates: start: 20110216, end: 20110324
  2. MAGNESIUM CARBONATE [Concomitant]
     Indication: CONSTIPATION
     Dosage: DAILY DOSE 2 G
     Route: 048
  3. GASRICK D SAWAI [Concomitant]
     Indication: PROPHYLAXIS AGAINST GASTROINTESTINAL ULCER
     Dosage: DAILY DOSE 40 MG
     Route: 048

REACTIONS (4)
  - HEPATIC FAILURE [None]
  - HAEMOBILIA [None]
  - ABDOMINAL PAIN [None]
  - HYPERBILIRUBINAEMIA [None]
